FAERS Safety Report 15065635 (Version 1)
Quarter: 2018Q2

REPORT INFORMATION
  Report Type: Spontaneous
  Country: US (occurrence: US)
  Receive Date: 20180626
  Receipt Date: 20180626
  Transmission Date: 20180711
  Serious: No
  Sender: FDA-Public Use
  Company Number: US-BIOGEN-2018BI00598695

PATIENT
  Sex: Female

DRUGS (1)
  1. PLEGRIDY [Suspect]
     Active Substance: PEGINTERFERON BETA-1A
     Indication: MULTIPLE SCLEROSIS
     Route: 065
     Dates: start: 20170831

REACTIONS (5)
  - Central nervous system lesion [Unknown]
  - Multiple sclerosis [Unknown]
  - Influenza like illness [Unknown]
  - Multiple sclerosis relapse [Unknown]
  - Malaise [Unknown]
